FAERS Safety Report 16914834 (Version 1)
Quarter: 2019Q4

REPORT INFORMATION
  Report Type: Report from Study
  Country: GB (occurrence: GB)
  Receive Date: 20191014
  Receipt Date: 20191014
  Transmission Date: 20200122
  Serious: Yes (Hospitalization, Other)
  Sender: FDA-Public Use
  Company Number: GB-MYLANLABS-2019M1095327

PATIENT
  Age: 38 Year
  Sex: Female

DRUGS (23)
  1. ZOLEDRONIC ACID [Concomitant]
     Active Substance: ZOLEDRONIC ACID
     Dosage: 4 MILLIGRAM, 3XW
     Route: 042
     Dates: start: 20151020
  2. ZOLEDRONIC ACID [Concomitant]
     Active Substance: ZOLEDRONIC ACID
     Dosage: 4 MILLIGRAM
     Route: 042
     Dates: start: 20151020
  3. GOSERELIN [Concomitant]
     Active Substance: GOSERELIN
     Dosage: 10.8 MILLIGRAM, MONTHLY
     Route: 058
     Dates: start: 20160526
  4. ANASTROZOLE. [Concomitant]
     Active Substance: ANASTROZOLE
     Dosage: RECOMMENCED ENDOCRINE TREATMENT ON COMPLETION OF CHEMOTHERAPY.
     Route: 048
     Dates: start: 201604
  5. AMITRIPTYLINE                      /00002202/ [Concomitant]
     Active Substance: AMITRIPTYLINE
     Dosage: UNK
  6. PARACETAMOL [Concomitant]
     Active Substance: ACETAMINOPHEN
     Dosage: 4 GRAM, QD
     Route: 048
  7. LANSOPRAZOLE. [Concomitant]
     Active Substance: LANSOPRAZOLE
     Dosage: 30 MILLIGRAM, QD
     Route: 048
  8. TRASTUZUMAB. [Suspect]
     Active Substance: TRASTUZUMAB
     Dosage: 903 MILLIGRAM, 3XW, LOADING DOSE
     Route: 042
     Dates: start: 20151020
  9. PERTUZUMAB. [Suspect]
     Active Substance: PERTUZUMAB
     Indication: BREAST CANCER METASTATIC
     Dosage: 840 MILLIGRAM, LOADING DOSE
     Route: 042
     Dates: start: 20151020
  10. PERTUZUMAB. [Suspect]
     Active Substance: PERTUZUMAB
     Dosage: 420 MILLIGRAM, 3XW, MAINTENANCE DOSE
     Route: 042
     Dates: start: 20151110
  11. ZOMORPH [Concomitant]
     Active Substance: MORPHINE SULFATE
     Dosage: 260 MILLIGRAM, QD
     Route: 048
  12. ADCAL D3 [Concomitant]
     Active Substance: CALCIUM CARBONATE\CHOLECALCIFEROL
     Dosage: 2 UNKNONW UNIT, DOSE: 2 TABLET, QD
     Route: 048
  13. DOCUSATE [Concomitant]
     Active Substance: DOCUSATE
     Dosage: 100 MILLIGRAM, PRN (AS NEEDED)
     Route: 048
  14. TRASTUZUMAB. [Suspect]
     Active Substance: TRASTUZUMAB
     Indication: BREAST CANCER METASTATIC
     Dosage: 714 MILLIGRAM
     Route: 042
     Dates: start: 20160202
  15. TRASTUZUMAB. [Suspect]
     Active Substance: TRASTUZUMAB
     Dosage: 598.5 MILLIGRAM, 3XW
     Route: 042
     Dates: start: 20161108
  16. PREDNISOLONE. [Concomitant]
     Active Substance: PREDNISOLONE
     Dosage: 30 MILLIGRAM, COMMENCED REDUCING SCHEDULE 08/01/16
     Route: 048
     Dates: start: 2016
  17. MORPHINE SULFATE. [Concomitant]
     Active Substance: MORPHINE SULFATE
     Dosage: 30 MILLIGRAM, HOURLY PRN
     Route: 048
  18. TRASTUZUMAB. [Suspect]
     Active Substance: TRASTUZUMAB
     Dosage: 672 MILLIGRAM, 3XW, MAINTENANCE DOSE
     Route: 042
     Dates: start: 20151110
  19. IBUPROFEN. [Concomitant]
     Active Substance: IBUPROFEN
     Dosage: 1200 MILLIGRAM, QD (AS NEEDED)
     Route: 048
  20. DOCETAXEL. [Suspect]
     Active Substance: DOCETAXEL
     Indication: BREAST CANCER METASTATIC
     Dosage: 150 MILLIGRAM, 3XW, 5 CYCLES
     Route: 042
     Dates: start: 20151021, end: 20160113
  21. PREDNISOLONE. [Concomitant]
     Active Substance: PREDNISOLONE
     Dosage: 10 MILLIGRAM (ON 10MG 17/03/16, STILL REDUCING TO STOP)
     Route: 048
     Dates: start: 2016
  22. GOSERELIN [Concomitant]
     Active Substance: GOSERELIN
     Dosage: 3.6 MILLIGRAM, MONTHLY
     Route: 058
     Dates: end: 20160525
  23. SENNA                              /00142201/ [Concomitant]
     Active Substance: SENNA LEAF
     Dosage: 7.5 MILLIGRAM, PRN (FREQUENCY : AS NEEDED)
     Route: 048

REACTIONS (6)
  - Vascular device infection [Recovered/Resolved]
  - Diarrhoea [Recovered/Resolved]
  - Neuropathy peripheral [Recovered/Resolved]
  - Dyspnoea [Recovered/Resolved]
  - Neurodermatitis [Recovered/Resolved]
  - Fatigue [Recovered/Resolved]

NARRATIVE: CASE EVENT DATE: 201601
